FAERS Safety Report 13598871 (Version 1)
Quarter: 2017Q2

REPORT INFORMATION
  Report Type: Spontaneous
  Country: BR (occurrence: BR)
  Receive Date: 20170531
  Receipt Date: 20170531
  Transmission Date: 20170830
  Serious: Yes (Other)
  Sender: FDA-Public Use
  Company Number: PHHY2017BR078066

PATIENT

DRUGS (2)
  1. PREDSIM [Suspect]
     Active Substance: PREDNISOLONE
     Indication: STILL^S DISEASE
     Dosage: 20 MG, QD
     Route: 065
  2. ILARIS [Suspect]
     Active Substance: CANAKINUMAB
     Indication: STILL^S DISEASE
     Dosage: 150 MG, EVERY 4 WEEKS
     Route: 065

REACTIONS (9)
  - Scleroderma [Unknown]
  - Product use in unapproved indication [Unknown]
  - Rash [Unknown]
  - Condition aggravated [Unknown]
  - Inflammation [Unknown]
  - Still^s disease [Unknown]
  - Arthralgia [Unknown]
  - Arthritis [Unknown]
  - Pyrexia [Unknown]
